FAERS Safety Report 4647254-4 (Version None)
Quarter: 2005Q2

REPORT INFORMATION
  Report Type: 
  Country: None (occurrence: None)
  Receive Date: 20050426
  Receipt Date: 20050412
  Transmission Date: 20051028
  Serious: Yes (Other)
  Sender: FDA-Public Use
  Company Number: 2005059030

PATIENT
  Sex: Male
  Weight: 90.7194 kg

DRUGS (11)
  1. DAYPRO [Suspect]
     Dosage: 1600 MG (1 IN 1D ) ORAL
     Route: 048
  2. BEXTRA [Suspect]
     Indication: NERVE INJURY
     Dosage: 10 MG (10 MG 2 IN 1 D) ORAL
     Route: 048
     Dates: end: 20050411
  3. METHADONE HCL [Concomitant]
  4. AMITRIPTYLINE HYDROCHLORIDE [Concomitant]
  5. DESIPRAMINE HCL [Concomitant]
  6. VALPROATE SODIUM [Concomitant]
  7. CARBAMAZEPINE [Concomitant]
  8. LAMOTRIGINE [Concomitant]
  9. OXYCODONE HCL [Concomitant]
  10. VICODIN [Concomitant]
  11. PREDNISONE [Concomitant]

REACTIONS (3)
  - NERVE INJURY [None]
  - PAIN [None]
  - PROCEDURAL COMPLICATION [None]
